FAERS Safety Report 17636045 (Version 1)
Quarter: 2020Q2

REPORT INFORMATION
  Report Type: Report from Study
  Country: None (occurrence: US)
  Receive Date: 20200407
  Receipt Date: 20200407
  Transmission Date: 20200713
  Serious: Yes (Hospitalization, Other)
  Sender: FDA-Public Use
  Company Number: US-ABBVIE-20K-163-3349513-00

PATIENT
  Sex: Female

DRUGS (1)
  1. HUMIRA [Suspect]
     Active Substance: ADALIMUMAB
     Indication: PSORIATIC ARTHROPATHY
     Route: 058
     Dates: start: 2017, end: 202002

REACTIONS (10)
  - Respiratory tract infection [Unknown]
  - Erythema [Unknown]
  - Loss of consciousness [Recovered/Resolved]
  - Sinusitis [Recovering/Resolving]
  - Benign neoplasm [Unknown]
  - Lower respiratory tract infection [Unknown]
  - Lymphadenopathy [Recovering/Resolving]
  - Cyst [Unknown]
  - Ear infection [Recovering/Resolving]
  - Psoriatic arthropathy [Not Recovered/Not Resolved]

NARRATIVE: CASE EVENT DATE: 2020
